FAERS Safety Report 4970097-9 (Version None)
Quarter: 2006Q2

REPORT INFORMATION
  Report Type: 
  Country: None (occurrence: None)
  Receive Date: 20060406
  Receipt Date: 20060324
  Transmission Date: 20061013
  Serious: Yes (Death, Life-Threatening, Hospitalization)
  Sender: FDA-Public Use
  Company Number: 2005135314

PATIENT
  Age: 58 Year
  Sex: Female
  Weight: 59.7841 kg

DRUGS (16)
  1. SUTENT [Suspect]
     Indication: RENAL CELL CARCINOMA STAGE UNSPECIFIED
     Dosage: 50 MG (50 MG, FOR 28 DAYS WITH A WITH A TWO-WEEK REST PERIOD) ORAL
     Route: 048
     Dates: start: 20050427, end: 20050927
  2. PEPCID [Concomitant]
  3. FOSAMAX [Concomitant]
  4. AREDIA [Concomitant]
  5. COMPAZINE [Concomitant]
  6. VICODIN [Concomitant]
  7. COLACE (DOCUSATE SODIUM) [Concomitant]
  8. LOPRESSOR [Concomitant]
  9. HYCODAN [Concomitant]
  10. MORPHINE SULFATE [Concomitant]
  11. LASIX [Concomitant]
  12. ATIVAN [Concomitant]
  13. NEURONTIN [Concomitant]
  14. HYDROCORTISONE [Concomitant]
  15. PROTONIX [Concomitant]
  16. KAYEXALATE [Concomitant]

REACTIONS (10)
  - ASCITES [None]
  - BLOOD CREATINE INCREASED [None]
  - BLOOD URIC ACID INCREASED [None]
  - DISEASE PROGRESSION [None]
  - GENERALISED OEDEMA [None]
  - HYPERKALAEMIA [None]
  - HYPOALBUMINAEMIA [None]
  - HYPOCALCAEMIA [None]
  - PLEURAL EFFUSION [None]
  - RENAL CELL CARCINOMA STAGE UNSPECIFIED [None]
